FAERS Safety Report 6917125-9 (Version None)
Quarter: 2010Q3

REPORT INFORMATION
  Report Type: 
  Country: None (occurrence: None)
  Receive Date: 20100810
  Receipt Date: 20100803
  Transmission Date: 20110219
  Serious: Yes (Other)
  Sender: FDA-Public Use
  Company Number: B0669188A

PATIENT
  Sex: Female

DRUGS (2)
  1. MALARONE [Suspect]
     Indication: PRODUCT USED FOR UNKNOWN INDICATION
     Route: 065
     Dates: start: 20100627, end: 20100628
  2. YAZ [Concomitant]
     Route: 048
     Dates: start: 20100101

REACTIONS (4)
  - ANGIOEDEMA [None]
  - EYE SWELLING [None]
  - FACIAL PAIN [None]
  - OROPHARYNGEAL PAIN [None]
